FAERS Safety Report 5659644-1 (Version None)
Quarter: 2008Q1

REPORT INFORMATION
  Report Type: 
  Country: None (occurrence: None)
  Receive Date: 20080310
  Receipt Date: 20080310
  Transmission Date: 20080703
  Serious: Yes (Other)
  Sender: FDA-Public Use
  Company Number: None

PATIENT
  Age: 53 Year
  Sex: Female
  Weight: 86.1834 kg

DRUGS (1)
  1. SEPTOCAINE [Suspect]
     Indication: NERVE BLOCK
     Dosage: ONE INJECTION  (ONE TIME USE)
     Dates: start: 20080219, end: 20080219

REACTIONS (3)
  - BURNING SENSATION [None]
  - MOUTH ULCERATION [None]
  - ORAL PAIN [None]
